FAERS Safety Report 18275141 (Version 1)
Quarter: 2020Q3

REPORT INFORMATION
  Report Type: Spontaneous
  Country: US (occurrence: US)
  Receive Date: 20200916
  Receipt Date: 20200916
  Transmission Date: 20201103
  Serious: Yes (Hospitalization, Other)
  Sender: FDA-Public Use
  Company Number: US-JNJFOC-A-NJ2017-155060

PATIENT
  Age: 61 Year
  Sex: Female
  Weight: 78.46 kg

DRUGS (12)
  1. UPTRAVI [Suspect]
     Active Substance: SELEXIPAG
     Dosage: 800 MCG IN AM, 200 MCG IN PM
     Route: 048
     Dates: start: 20200712
  2. UPTRAVI [Suspect]
     Active Substance: SELEXIPAG
     Route: 048
     Dates: end: 202008
  3. UPTRAVI [Suspect]
     Active Substance: SELEXIPAG
     Dosage: 200 MCG, BID
     Route: 048
  4. LASIX [Concomitant]
     Active Substance: FUROSEMIDE
  5. OPSUMIT [Suspect]
     Active Substance: MACITENTAN
     Dosage: 10 MG, QD
     Route: 048
  6. UPTRAVI [Suspect]
     Active Substance: SELEXIPAG
     Indication: PULMONARY ARTERIAL HYPERTENSION
     Dosage: 1000 MCG, BID
     Route: 048
     Dates: start: 20200715
  7. UPTRAVI [Suspect]
     Active Substance: SELEXIPAG
     Dosage: 800 MCG, BID
     Route: 048
  8. OPSUMIT [Suspect]
     Active Substance: MACITENTAN
     Indication: PULMONARY ARTERIAL HYPERTENSION
     Dosage: 10 MG, QD
     Route: 048
     Dates: start: 20170525
  9. UPTRAVI [Suspect]
     Active Substance: SELEXIPAG
     Dosage: 800MCG IN AM AND 1000MCG IN EVENING
     Route: 048
     Dates: start: 202008
  10. REVATIO [Concomitant]
     Active Substance: SILDENAFIL CITRATE
  11. ELIQUIS [Concomitant]
     Active Substance: APIXABAN
  12. UPTRAVI [Suspect]
     Active Substance: SELEXIPAG
     Dosage: 800 MCG, BID
     Route: 048
     Dates: start: 20200716

REACTIONS (25)
  - Autoimmune disorder [Unknown]
  - Syncope [Unknown]
  - Cardiac disorder [Unknown]
  - Productive cough [Unknown]
  - Cough [Unknown]
  - Hypotension [Unknown]
  - Weight increased [Unknown]
  - Nasal congestion [Unknown]
  - Oedema [Unknown]
  - Arthralgia [Unknown]
  - Pain in jaw [Unknown]
  - Dizziness [Unknown]
  - Hypertension [Not Recovered/Not Resolved]
  - Urinary tract infection [Unknown]
  - Nausea [Unknown]
  - Diarrhoea [Not Recovered/Not Resolved]
  - Myalgia [Unknown]
  - Migraine [Unknown]
  - Dyspnoea [Unknown]
  - Hospitalisation [Unknown]
  - Fall [Unknown]
  - Nasopharyngitis [Unknown]
  - Pathological fracture [Unknown]
  - Inflammation [Unknown]
  - Headache [Unknown]

NARRATIVE: CASE EVENT DATE: 2017
